FAERS Safety Report 19401202 (Version 1)
Quarter: 2021Q2

REPORT INFORMATION
  Report Type: Spontaneous
  Country: US (occurrence: US)
  Receive Date: 20210610
  Receipt Date: 20210610
  Transmission Date: 20210717
  Serious: Yes (Other)
  Sender: FDA-Public Use
  Company Number: US-SA-2021SA186432

PATIENT
  Age: 88 Year
  Sex: Male

DRUGS (2)
  1. MOXIFLOXACIN HYDROCHLORIDE. [Suspect]
     Active Substance: MOXIFLOXACIN HYDROCHLORIDE
     Route: 061
  2. AFLIBERCEPT [Suspect]
     Active Substance: AFLIBERCEPT
     Route: 031

REACTIONS (10)
  - Corneal oedema [Unknown]
  - Ocular hyperaemia [Unknown]
  - Fibrin [Unknown]
  - Vitritis [Unknown]
  - Retinal haemorrhage [Recovering/Resolving]
  - Pain [Unknown]
  - Endophthalmitis [Unknown]
  - Visual impairment [Unknown]
  - Hypopyon [Unknown]
  - Visual acuity reduced [Recovering/Resolving]
